FAERS Safety Report 7075509-5 (Version None)
Quarter: 2010Q4

REPORT INFORMATION
  Report Type: 
  Country: None (occurrence: None)
  Receive Date: 20101030
  Receipt Date: 20100922
  Transmission Date: 20110411
  Serious: No
  Sender: FDA-Public Use
  Company Number: US-WYE-H17692110

PATIENT
  Sex: Female

DRUGS (2)
  1. PRISTIQ [Suspect]
     Dosage: UNSPECIFIED
     Dates: start: 20100201, end: 20100901
  2. PRISTIQ [Suspect]
     Dosage: CUT PRISTIQ IN HALF AND RESTART THERAPY
     Dates: start: 20100901

REACTIONS (4)
  - DRUG WITHDRAWAL SYNDROME [None]
  - FATIGUE [None]
  - FEELING ABNORMAL [None]
  - VISION BLURRED [None]
